FAERS Safety Report 24766780 (Version 14)
Quarter: 2025Q3

REPORT INFORMATION
  Report Type: Spontaneous
  Country: EU (occurrence: EU)
  Receive Date: 20241223
  Receipt Date: 20250925
  Transmission Date: 20251020
  Serious: Yes (Hospitalization, Other)
  Sender: SANDOZ
  Company Number: EU-USP-ICSR-2024-02-08-09-34-42-48-49-79-86-96-102-107-128-129-132_128

PATIENT
  Age: 36 Year
  Sex: Female

DRUGS (74)
  1. AMOXICILLIN [Suspect]
     Active Substance: AMOXICILLIN
     Indication: Toothache
     Route: 065
  2. AMOXICILLIN [Suspect]
     Active Substance: AMOXICILLIN
     Indication: Toothache
     Route: 065
  3. BENZYDAMINE [Suspect]
     Active Substance: BENZYDAMINE
     Indication: Toothache
     Route: 061
  4. BENZYDAMINE [Suspect]
     Active Substance: BENZYDAMINE
     Route: 061
  5. BENZYDAMINE [Suspect]
     Active Substance: BENZYDAMINE
     Route: 061
  6. BUPRENORPHINE [Suspect]
     Active Substance: BUPRENORPHINE
     Indication: Toothache
     Route: 065
  7. BUPRENORPHINE [Suspect]
     Active Substance: BUPRENORPHINE
     Indication: Toothache
     Route: 003
  8. BUPRENORPHINE [Suspect]
     Active Substance: BUPRENORPHINE
     Route: 062
  9. BUPRENORPHINE [Suspect]
     Active Substance: BUPRENORPHINE
     Route: 062
  10. BUPRENORPHINE [Suspect]
     Active Substance: BUPRENORPHINE
     Route: 065
  11. CLINDAMYCIN [Suspect]
     Active Substance: CLINDAMYCIN
     Indication: Toothache
     Route: 065
  12. CLINDAMYCIN [Suspect]
     Active Substance: CLINDAMYCIN
     Indication: Toothache
     Route: 065
  13. ACETAMINOPHEN\CODEINE PHOSPHATE [Suspect]
     Active Substance: ACETAMINOPHEN\CODEINE PHOSPHATE
     Indication: Toothache
     Route: 065
  14. CHLORHEXIDINE [Suspect]
     Active Substance: CHLORHEXIDINE
     Indication: Toothache
     Route: 061
  15. CHLORHEXIDINE [Suspect]
     Active Substance: CHLORHEXIDINE
     Route: 061
  16. CODEINE [Suspect]
     Active Substance: CODEINE
     Indication: Toothache
     Route: 065
  17. ACETAMINOPHEN\CODEINE PHOSPHATE [Suspect]
     Active Substance: ACETAMINOPHEN\CODEINE PHOSPHATE
     Indication: Toothache
     Route: 065
  18. ACETAMINOPHEN\CODEINE PHOSPHATE [Suspect]
     Active Substance: ACETAMINOPHEN\CODEINE PHOSPHATE
     Indication: Toothache
     Route: 065
  19. DICLOFENAC [Suspect]
     Active Substance: DICLOFENAC
     Route: 048
  20. DICLOFENAC [Suspect]
     Active Substance: DICLOFENAC
     Indication: Toothache
     Route: 061
  21. DICLOFENAC [Suspect]
     Active Substance: DICLOFENAC
     Indication: Toothache
     Route: 048
  22. DULOXETINE [Suspect]
     Active Substance: DULOXETINE
     Indication: Pain
     Route: 065
  23. DIAZEPAM [Suspect]
     Active Substance: DIAZEPAM
     Indication: Toothache
     Route: 065
  24. DIAZEPAM [Suspect]
     Active Substance: DIAZEPAM
     Indication: Toothache
     Route: 065
  25. ETORICOXIB [Suspect]
     Active Substance: ETORICOXIB
     Indication: Pain
     Route: 065
  26. FLURBIPROFEN [Suspect]
     Active Substance: FLURBIPROFEN
     Indication: Toothache
     Route: 061
  27. FLURBIPROFEN [Suspect]
     Active Substance: FLURBIPROFEN
     Indication: Toothache
     Route: 065
  28. IBUPROFEN [Suspect]
     Active Substance: IBUPROFEN
     Route: 048
  29. IBUPROFEN [Suspect]
     Active Substance: IBUPROFEN
     Indication: Toothache
     Route: 065
  30. IBUPROFEN [Suspect]
     Active Substance: IBUPROFEN
     Indication: Toothache
     Route: 065
  31. KETOPROFEN [Suspect]
     Active Substance: KETOPROFEN
     Indication: Toothache
     Route: 065
  32. METAMIZOLE [Suspect]
     Active Substance: METAMIZOLE
     Indication: Gingival pain
     Route: 065
  33. METAMIZOLE [Suspect]
     Active Substance: METAMIZOLE
     Indication: Toothache
  34. MORPHINE [Suspect]
     Active Substance: MORPHINE
     Indication: Toothache
     Route: 061
  35. MORPHINE [Suspect]
     Active Substance: MORPHINE
     Route: 065
  36. MORPHINE [Suspect]
     Active Substance: MORPHINE
     Indication: Toothache
     Route: 061
  37. PREGABALIN [Suspect]
     Active Substance: PREGABALIN
     Indication: Product used for unknown indication
     Route: 065
  38. ACETAMINOPHEN [Suspect]
     Active Substance: ACETAMINOPHEN
     Indication: Gingival pain
     Route: 065
  39. ACETAMINOPHEN [Suspect]
     Active Substance: ACETAMINOPHEN
     Indication: Toothache
     Route: 065
  40. TRAZODONE [Suspect]
     Active Substance: TRAZODONE HYDROCHLORIDE
     Indication: Pain
     Route: 065
  41. XYLOCAINE [Suspect]
     Active Substance: LIDOCAINE HYDROCHLORIDE
     Indication: Toothache
     Route: 061
  42. XYLOCAINE [Suspect]
     Active Substance: LIDOCAINE HYDROCHLORIDE
     Route: 065
  43. IPIDACRINE [Concomitant]
     Active Substance: IPIDACRINE
     Route: 065
  44. IPIDACRINE [Concomitant]
     Active Substance: IPIDACRINE
     Indication: Product used for unknown indication
     Route: 065
  45. IPIDACRINE [Concomitant]
     Active Substance: IPIDACRINE
     Route: 065
  46. IPIDACRINE [Concomitant]
     Active Substance: IPIDACRINE
     Route: 065
  47. IPIDACRINE [Concomitant]
     Active Substance: IPIDACRINE
     Route: 065
  48. IPIDACRINE [Concomitant]
     Active Substance: IPIDACRINE
     Route: 065
  49. IPIDACRINE [Concomitant]
     Active Substance: IPIDACRINE
     Route: 065
  50. IPIDACRINE [Concomitant]
     Active Substance: IPIDACRINE
     Route: 065
  51. IPIDACRINE [Concomitant]
     Active Substance: IPIDACRINE
     Route: 065
  52. IPIDACRINE [Concomitant]
     Active Substance: IPIDACRINE
     Route: 065
  53. IPIDACRINE [Concomitant]
     Active Substance: IPIDACRINE
     Route: 065
  54. IPIDACRINE [Concomitant]
     Active Substance: IPIDACRINE
     Route: 065
  55. IPIDACRINE [Concomitant]
     Active Substance: IPIDACRINE
     Route: 065
  56. KETOPROFEN [Concomitant]
     Active Substance: KETOPROFEN
     Indication: Analgesic therapy
     Route: 065
  57. KETOPROFEN [Concomitant]
     Active Substance: KETOPROFEN
     Indication: Toothache
     Route: 065
  58. KETOPROFEN [Concomitant]
     Active Substance: KETOPROFEN
     Route: 065
  59. KETOPROFEN [Concomitant]
     Active Substance: KETOPROFEN
     Route: 065
  60. METAMIZOLE [Concomitant]
     Active Substance: METAMIZOLE
     Indication: Gingival pain
     Route: 065
  61. METAMIZOLE [Concomitant]
     Active Substance: METAMIZOLE
     Indication: Toothache
     Route: 065
  62. OXYCODONE [Concomitant]
     Active Substance: OXYCODONE
     Indication: Toothache
     Route: 065
  63. OXYCODONE [Concomitant]
     Active Substance: OXYCODONE
     Route: 065
  64. OXYCODONE [Concomitant]
     Active Substance: OXYCODONE
     Route: 065
  65. OXYCODONE [Concomitant]
     Active Substance: OXYCODONE
     Route: 065
  66. OXYCODONE [Concomitant]
     Active Substance: OXYCODONE
     Indication: Analgesic therapy
     Route: 061
  67. DOXYLAMINE [Interacting]
     Active Substance: DOXYLAMINE
     Indication: Insomnia
     Dosage: 25 MG AT NIGHT
     Route: 065
  68. DOXYLAMINE [Interacting]
     Active Substance: DOXYLAMINE
     Indication: Depression
  69. DOXYLAMINE [Interacting]
     Active Substance: DOXYLAMINE
     Indication: Insomnia
  70. DOXYLAMINE [Interacting]
     Active Substance: DOXYLAMINE
     Indication: Sleep disorder
  71. ESCITALOPRAM [Interacting]
     Active Substance: ESCITALOPRAM OXALATE
     Indication: Depression
     Dosage: 10 MG, QD (10 MILLIGRAM, QD (AT NIGHT))
     Route: 065
  72. ESCITALOPRAM [Interacting]
     Active Substance: ESCITALOPRAM OXALATE
     Indication: Depression
  73. ESCITALOPRAM [Interacting]
     Active Substance: ESCITALOPRAM OXALATE
     Indication: Insomnia
  74. ESCITALOPRAM [Interacting]
     Active Substance: ESCITALOPRAM OXALATE
     Indication: Insomnia

REACTIONS (10)
  - Toothache [Recovering/Resolving]
  - Hyperaesthesia [Recovered/Resolved]
  - Central pain syndrome [Recovered/Resolved]
  - Drug interaction [Unknown]
  - Hyperaesthesia [Recovered/Resolved]
  - Drug ineffective [Unknown]
  - Off label use [Unknown]
  - Dry mouth [Unknown]
  - Somnolence [Unknown]
  - Gingival pain [Recovering/Resolving]
